FAERS Safety Report 8880784 (Version 2)
Quarter: 2012Q4

REPORT INFORMATION
  Report Type: 
  Country: FR (occurrence: FR)
  Receive Date: 20121101
  Receipt Date: 20121211
  Transmission Date: 20130627
  Serious: Yes (Death)
  Sender: FDA-Public Use
  Company Number: FR-GLAXOSMITHKLINE-B0841481A

PATIENT
  Age: 55 Year
  Sex: Female

DRUGS (2)
  1. PROPAFENONE [Suspect]
     Indication: PRODUCT USED FOR UNKNOWN INDICATION
     Route: 048
  2. UNKNOWN MEDICATION [Concomitant]

REACTIONS (2)
  - Completed suicide [Fatal]
  - Toxicity to various agents [Unknown]
